FAERS Safety Report 25882280 (Version 1)
Quarter: 2025Q4

REPORT INFORMATION
  Report Type: Spontaneous
  Country: JP (occurrence: JP)
  Receive Date: 20251006
  Receipt Date: 20251006
  Transmission Date: 20260117
  Serious: No
  Sender: ABBVIE
  Company Number: JP-ABBOTT-05P-087-0318768-00

PATIENT
  Age: 1 Day

DRUGS (8)
  1. SEVOFLURANE [Suspect]
     Active Substance: SEVOFLURANE
     Indication: Maternal exposure timing unspecified
  2. HERBESSER [Suspect]
     Active Substance: DILTIAZEM HYDROCHLORIDE
     Indication: Maternal exposure timing unspecified
  3. THIAMYLAL SODIUM [Suspect]
     Active Substance: THIAMYLAL SODIUM
     Indication: Maternal exposure timing unspecified
  4. RELAXIN PORCINE [Suspect]
     Active Substance: RELAXIN PORCINE
     Indication: Maternal exposure timing unspecified
  5. FENTANYL CITRATE [Suspect]
     Active Substance: FENTANYL CITRATE
     Indication: Maternal exposure timing unspecified
  6. DIPRIVAN [Suspect]
     Active Substance: PROPOFOL
     Indication: Maternal exposure timing unspecified
  7. VECURONIUM BROMIDE [Suspect]
     Active Substance: VECURONIUM BROMIDE
     Indication: Maternal exposure timing unspecified
  8. ALPROSTADIL [Suspect]
     Active Substance: ALPROSTADIL
     Indication: Maternal exposure timing unspecified

REACTIONS (2)
  - Foetal exposure during pregnancy [Unknown]
  - Somnolence neonatal [Unknown]
